FAERS Safety Report 15375558 (Version 2)
Quarter: 2018Q3

REPORT INFORMATION
  Report Type: Spontaneous
  Country: US (occurrence: US)
  Receive Date: 20180912
  Receipt Date: 20180914
  Transmission Date: 20181010
  Serious: Yes (Hospitalization)
  Sender: FDA-Public Use
  Company Number: US-BAYER-2018-166448

PATIENT
  Age: 35 Year
  Sex: Female
  Weight: 113.97 kg

DRUGS (2)
  1. BAYER LOW DOSE [Suspect]
     Active Substance: ASPIRIN
     Indication: PAIN
     Dosage: 1 DF, QD
     Route: 048
     Dates: start: 1988, end: 1988
  2. BAYER ASPIRIN [Suspect]
     Active Substance: ASPIRIN
     Dosage: UNK
     Route: 065

REACTIONS (3)
  - Drug hypersensitivity [Unknown]
  - Vomiting [Recovered/Resolved]
  - Drug hypersensitivity [None]

NARRATIVE: CASE EVENT DATE: 1988
